FAERS Safety Report 8015497-8 (Version None)
Quarter: 2011Q4

REPORT INFORMATION
  Report Type: 
  Country: None (occurrence: None)
  Receive Date: 20111223
  Receipt Date: 20111212
  Transmission Date: 20120403
  Serious: Yes (Hospitalization, Other)
  Sender: FDA-Public Use
  Company Number: FK201102949

PATIENT
  Age: 32 Year
  Sex: Male

DRUGS (1)
  1. HALOPERIDOL DECANOATE [Suspect]
     Indication: MENTAL RETARDATION
     Dosage: 100 MG, 10 DAYS

REACTIONS (5)
  - NEUROLEPTIC MALIGNANT SYNDROME [None]
  - ABNORMAL BEHAVIOUR [None]
  - COLITIS ISCHAEMIC [None]
  - DIARRHOEA HAEMORRHAGIC [None]
  - PSYCHOMOTOR HYPERACTIVITY [None]
